FAERS Safety Report 5782716-8 (Version None)
Quarter: 2008Q2

REPORT INFORMATION
  Report Type: 
  Country: None (occurrence: None)
  Receive Date: 20080624
  Receipt Date: 20080613
  Transmission Date: 20081010
  Serious: Yes (Life-Threatening)
  Sender: FDA-Public Use
  Company Number: JP-ELI_LILLY_AND_COMPANY-JP200803005464

PATIENT
  Age: 71 Year
  Sex: Male

DRUGS (3)
  1. PEMETREXED [Suspect]
     Indication: PLEURAL MESOTHELIOMA MALIGNANT
     Dosage: 750 MG, OTHER
     Route: 042
     Dates: start: 20070101, end: 20071113
  2. CISPLATIN [Suspect]
     Indication: PLEURAL MESOTHELIOMA MALIGNANT
     Dosage: 113 MG, OTHER
     Route: 042
     Dates: start: 20070101, end: 20071113
  3. KYTRIL [Concomitant]
     Indication: PROPHYLAXIS OF NAUSEA AND VOMITING
     Dosage: 3 MG, DAILY (1/D)
     Route: 042
     Dates: start: 20071113, end: 20071117

REACTIONS (1)
  - INTESTINAL PERFORATION [None]
